FAERS Safety Report 6193206-5 (Version None)
Quarter: 2009Q2

REPORT INFORMATION
  Report Type: 
  Country: None (occurrence: None)
  Receive Date: 20090518
  Receipt Date: 20090508
  Transmission Date: 20091009
  Serious: Yes (Hospitalization)
  Sender: FDA-Public Use
  Company Number: A0776008A

PATIENT
  Age: 63 Year
  Sex: Female
  Weight: 72.7 kg

DRUGS (4)
  1. AVANDIA [Suspect]
     Indication: DIABETES MELLITUS
     Dosage: 2MG PER DAY
     Route: 048
     Dates: start: 20010402, end: 20050601
  2. CLONIDINE [Concomitant]
  3. NORVASC [Concomitant]
  4. ACCUPRIL [Concomitant]

REACTIONS (4)
  - ACTIVITIES OF DAILY LIVING IMPAIRED [None]
  - HEART INJURY [None]
  - MOBILITY DECREASED [None]
  - MYOCARDIAL INFARCTION [None]
